FAERS Safety Report 19986599 (Version 1)
Quarter: 2021Q4

REPORT INFORMATION
  Report Type: Spontaneous
  Country: US (occurrence: US)
  Receive Date: 20211022
  Receipt Date: 20211022
  Transmission Date: 20220303
  Serious: Yes (Hospitalization)
  Sender: FDA-Public Use
  Company Number: US-BIOGEN-2021BI01054602

PATIENT
  Age: 33 Year
  Sex: Male

DRUGS (1)
  1. SPINRAZA [Suspect]
     Active Substance: NUSINERSEN
     Indication: Spinal muscular atrophy
     Route: 037

REACTIONS (3)
  - Pneumonia [Not Recovered/Not Resolved]
  - Aspiration [Unknown]
  - Increased appetite [Unknown]

NARRATIVE: CASE EVENT DATE: 20210923
